FAERS Safety Report 6658001-9 (Version None)
Quarter: 2010Q1

REPORT INFORMATION
  Report Type: 
  Country: None (occurrence: None)
  Receive Date: 20100325
  Receipt Date: 20100316
  Transmission Date: 20100710
  Serious: Yes (Other)
  Sender: FDA-Public Use
  Company Number: 2010AL001665

PATIENT
  Age: 57 Year
  Sex: Male

DRUGS (4)
  1. AMLODIPINE BESYLATE [Suspect]
     Dosage: 10 MG; QD; PO
     Route: 048
     Dates: start: 20091001
  2. CORODIL [Concomitant]
  3. SIMVASTATIN [Concomitant]
  4. ORABET [Concomitant]

REACTIONS (8)
  - BACK PAIN [None]
  - CHEST PAIN [None]
  - DRY MOUTH [None]
  - ERECTILE DYSFUNCTION [None]
  - MUSCLE FATIGUE [None]
  - MUSCLE SPASMS [None]
  - MUSCULAR WEAKNESS [None]
  - PALPITATIONS [None]
